FAERS Safety Report 8976300 (Version 1)
Quarter: 2012Q4

REPORT INFORMATION
  Report Type: Report from Study
  Country: US (occurrence: US)
  Receive Date: 20121220
  Receipt Date: 20121220
  Transmission Date: 20130627
  Serious: Yes (Other)
  Sender: FDA-Public Use
  Company Number: US-PURDUE-USA-2012-0097061

PATIENT
  Sex: Male

DRUGS (2)
  1. OXYCONTIN (NDA 22-272) [Suspect]
     Indication: NECK PAIN
     Dosage: 80 mg, q12h
  2. OXYCONTIN (NDA 22-272) [Suspect]
     Dosage: 40 mg, q12h

REACTIONS (2)
  - Neuropathy peripheral [Not Recovered/Not Resolved]
  - Abasia [Not Recovered/Not Resolved]
